FAERS Safety Report 9009856 (Version 1)
Quarter: 2013Q1

REPORT INFORMATION
  Report Type: Spontaneous
  Country: US (occurrence: US)
  Receive Date: 20130110
  Receipt Date: 20130110
  Transmission Date: 20140127
  Serious: Yes (Hospitalization)
  Sender: FDA-Public Use
  Company Number: US-ASTELLAS-2013US000179

PATIENT
  Age: 26 None
  Sex: Male
  Weight: 76 kg

DRUGS (27)
  1. PROGRAF [Suspect]
     Indication: PROPHYLAXIS AGAINST GRAFT VERSUS HOST DISEASE
     Dosage: UNK
     Route: 048
     Dates: start: 20121021
  2. PROGRAF [Suspect]
     Dosage: 2 MG, Q12 HOURS
     Route: 048
  3. PROGRAF [Suspect]
     Dosage: 4 MG, Q12 HOURS
     Route: 048
  4. ZYPREXA ZYDIS [Suspect]
     Indication: PRODUCT USED FOR UNKNOWN INDICATION
     Dosage: 5 MG, BID
     Route: 060
  5. VELCADE [Concomitant]
     Indication: PROPHYLAXIS AGAINST GRAFT VERSUS HOST DISEASE
     Dosage: 2.4 MG, TOTAL DOSE
     Route: 042
     Dates: start: 20121026, end: 20121026
  6. VELCADE [Concomitant]
     Dosage: 2.4 MG, TOTAL DOSE
     Route: 042
     Dates: start: 20121029, end: 20121029
  7. VELCADE [Concomitant]
     Dosage: 2.4 MG, TOTAL DOSE
     Route: 042
     Dates: start: 20121101, end: 20121101
  8. METHOTREXATE [Concomitant]
     Indication: PROPHYLAXIS AGAINST GRAFT VERSUS HOST DISEASE
     Dosage: 24.6 MG, UID/QD
     Route: 042
     Dates: start: 20121026, end: 20121026
  9. METHOTREXATE [Concomitant]
     Dosage: 18.4 MG, TOTAL DOSE
     Route: 042
     Dates: start: 20121028, end: 20121028
  10. METHOTREXATE [Concomitant]
     Dosage: 18.4 MG, TOTAL DOSE
     Route: 042
     Dates: start: 20121031, end: 20121031
  11. METHOTREXATE [Concomitant]
     Dosage: 18.4 MG, TOTAL DOSE
     Route: 042
     Dates: start: 20121105, end: 20121105
  12. MEPRON                             /01181501/ [Concomitant]
     Indication: PRODUCT USED FOR UNKNOWN INDICATION
     Dosage: 750 MG, Q12 HOURS
     Route: 048
  13. ACYCLOVIR                          /00587301/ [Concomitant]
     Indication: PRODUCT USED FOR UNKNOWN INDICATION
     Dosage: 400 MG, Q8 HOURS
     Route: 048
  14. LORAZEPAM [Concomitant]
     Indication: PRODUCT USED FOR UNKNOWN INDICATION
     Dosage: 1-2 MG, Q6 HOURS
     Route: 048
  15. BENADRYL                           /00000402/ [Concomitant]
     Indication: PRODUCT USED FOR UNKNOWN INDICATION
     Dosage: 25 MG, Q6 HOURS
     Route: 048
  16. TRAZODONE [Concomitant]
     Indication: PRODUCT USED FOR UNKNOWN INDICATION
     Dosage: 25 MG, UID/QD
     Route: 048
  17. CALCIUM CARBONATE [Concomitant]
     Indication: PRODUCT USED FOR UNKNOWN INDICATION
     Dosage: 1000-2000 MG, Q6 HOURS
     Route: 048
  18. COLACE [Concomitant]
     Indication: PRODUCT USED FOR UNKNOWN INDICATION
     Dosage: 100 MG, BID
     Route: 048
  19. COMPAZINE                          /00013302/ [Concomitant]
     Indication: PRODUCT USED FOR UNKNOWN INDICATION
     Dosage: 10 MG, Q6 HOURS
     Route: 048
  20. ACTIGALL [Concomitant]
     Indication: PRODUCT USED FOR UNKNOWN INDICATION
     Dosage: 300 MG, TID
     Route: 048
  21. FOLIC ACID [Concomitant]
     Indication: PRODUCT USED FOR UNKNOWN INDICATION
     Dosage: 1 MG, UID/QD
     Route: 048
  22. VITAMINS /90003601/ [Concomitant]
     Indication: PRODUCT USED FOR UNKNOWN INDICATION
     Dosage: 1 DF, UID/QD
     Route: 048
  23. NYSTATIN [Concomitant]
     Indication: PRODUCT USED FOR UNKNOWN INDICATION
     Dosage: 5 ML, TID
     Route: 048
  24. STANNOUS FLUORIDE [Concomitant]
     Indication: PRODUCT USED FOR UNKNOWN INDICATION
     Dosage: 0.4 %, UID/QD
     Route: 048
  25. MAG-OX [Concomitant]
     Indication: PRODUCT USED FOR UNKNOWN INDICATION
     Dosage: 400 MG, TID
     Route: 048
  26. PERIDEX                            /00133002/ [Concomitant]
     Indication: PRODUCT USED FOR UNKNOWN INDICATION
     Dosage: 15 ML, BID
     Route: 048
  27. SARNA [Concomitant]
     Indication: PRODUCT USED FOR UNKNOWN INDICATION
     Dosage: 1 DF, UID/QD
     Route: 061

REACTIONS (18)
  - Off label use [Unknown]
  - Graft versus host disease [Unknown]
  - Pyrexia [Recovered/Resolved]
  - Transaminases increased [Recovering/Resolving]
  - Oral disorder [Unknown]
  - Urticaria [Unknown]
  - Skin hypertrophy [Recovering/Resolving]
  - Stomatitis [Unknown]
  - Blood albumin decreased [Unknown]
  - Pruritus [Unknown]
  - Upper respiratory tract infection [Unknown]
  - Sinusitis [Unknown]
  - Local swelling [Unknown]
  - Pain in extremity [Not Recovered/Not Resolved]
  - Coagulation time prolonged [Unknown]
  - Hyponatraemia [Unknown]
  - Diarrhoea [Unknown]
  - Sinus tachycardia [Unknown]
